FAERS Safety Report 7649069-1 (Version None)
Quarter: 2011Q3

REPORT INFORMATION
  Report Type: 
  Country: None (occurrence: None)
  Receive Date: 20110726
  Receipt Date: 20110714
  Transmission Date: 20111222
  Serious: Yes (Other)
  Sender: FDA-Public Use
  Company Number: GER/GER/11/0019048

PATIENT
  Age: 70 Year
  Sex: Female

DRUGS (2)
  1. ALENDRONATE SODIUM [Suspect]
     Dosage: 1 IN 1M, ORAL
     Route: 048
     Dates: start: 20070701, end: 20080801
  2. ALENDRONATE SODIUM [Suspect]
     Dosage: 1 IN 1M, ORAL
     Route: 048
     Dates: start: 20021001, end: 20051231

REACTIONS (3)
  - PURULENCE [None]
  - FISTULA [None]
  - OSTEONECROSIS OF JAW [None]
